FAERS Safety Report 19835177 (Version 20)
Quarter: 2024Q3

REPORT INFORMATION
  Report Type: Spontaneous
  Country: IN (occurrence: IN)
  Receive Date: 20210915
  Receipt Date: 20240729
  Transmission Date: 20241017
  Serious: Yes (Hospitalization, Other)
  Sender: PFIZER
  Company Number: IN-PFIZER INC-2020476509

PATIENT
  Age: 64 Year
  Sex: Female
  Weight: 35.3 kg

DRUGS (19)
  1. DACOMITINIB [Suspect]
     Active Substance: DACOMITINIB
     Indication: Lung cancer metastatic
     Dosage: 30 MG, 1X/DAY
     Route: 048
     Dates: start: 20201127
  2. DACOMITINIB [Suspect]
     Active Substance: DACOMITINIB
     Dosage: 30 MG, 1X/DAY
     Route: 048
     Dates: start: 20210115
  3. DACOMITINIB [Suspect]
     Active Substance: DACOMITINIB
     Dosage: 15 MG, 1X/DAY
     Route: 048
     Dates: start: 20210219
  4. DACOMITINIB [Suspect]
     Active Substance: DACOMITINIB
     Dosage: 15 MG, 1X/DAY (1 HOUR BEFORE FOOD/ 2 HOUR AFTER FOOD)
     Route: 048
     Dates: start: 20210430
  5. DACOMITINIB [Suspect]
     Active Substance: DACOMITINIB
     Dosage: 15 MG, 1X/DAY
     Route: 048
     Dates: start: 20210630
  6. DACOMITINIB [Suspect]
     Active Substance: DACOMITINIB
     Dosage: 15 MG, 1X/DAY  (1 HOUR BEFORE FOOD / 2 HOUR AFTER FOOD)
     Route: 048
  7. METOCLOPRAMIDE HYDROCHLORIDE [Concomitant]
     Active Substance: METOCLOPRAMIDE HYDROCHLORIDE
     Dosage: UNK, 1X/DAY, IF NEEDED
  8. METOCLOPRAMIDE HYDROCHLORIDE [Concomitant]
     Active Substance: METOCLOPRAMIDE HYDROCHLORIDE
     Dosage: 1 DF, AS NEEDED(MAX 3TABS/DAY)
  9. IMODIUM [Concomitant]
     Active Substance: LOPERAMIDE HYDROCHLORIDE
     Dosage: DAILY
     Route: 048
  10. IMODIUM [Concomitant]
     Active Substance: LOPERAMIDE HYDROCHLORIDE
     Dosage: 2 DF, AS NEEDED
     Route: 048
  11. IMODIUM [Concomitant]
     Active Substance: LOPERAMIDE HYDROCHLORIDE
     Dosage: 2 MG, AS NEEDED (SOS)
  12. DOXYCYCLINE [Concomitant]
     Active Substance: DOXYCYCLINE\DOXYCYCLINE HYCLATE
     Dosage: 100 MG, DAILY
     Route: 048
  13. CLINDAMYCIN [Concomitant]
     Active Substance: CLINDAMYCIN
     Dosage: UNK
  14. HYDROCORTISONE [Concomitant]
     Active Substance: HYDROCORTISONE\HYDROCORTISONE ACETATE
     Dosage: UNK
     Route: 061
  15. ALLEGRA [Concomitant]
     Active Substance: FEXOFENADINE HYDROCHLORIDE
     Dosage: 120 MG, IF NEEDED
  16. MEGASTY [Concomitant]
     Dosage: 160 MG, 1X/DAY
  17. MEGASTY [Concomitant]
     Dosage: 160 MG, 1X/DAY
  18. MUCORAL [Concomitant]
     Dosage: UNK UNK, 2X/DAY (BD) (MOUTHWASH)
  19. RIVAROXABAN [Concomitant]
     Active Substance: RIVAROXABAN
     Indication: Platelet disorder
     Dosage: 20 MG, 1X/DAY

REACTIONS (29)
  - Diarrhoea [Unknown]
  - Pneumobilia [Unknown]
  - Cataract [Unknown]
  - Carcinoembryonic antigen increased [Unknown]
  - Palmar-plantar erythrodysaesthesia syndrome [Unknown]
  - Dyspnoea [Recovered/Resolved]
  - Pruritus [Unknown]
  - Rash [Not Recovered/Not Resolved]
  - Paronychia [Not Recovered/Not Resolved]
  - Pain [Unknown]
  - Decreased appetite [Unknown]
  - Asthenia [Unknown]
  - Neoplasm progression [Unknown]
  - Skin reaction [Unknown]
  - Blood pressure increased [Unknown]
  - Heart rate increased [Unknown]
  - Oedema peripheral [Unknown]
  - Nasopharyngitis [Unknown]
  - Weight decreased [Unknown]
  - Blood alkaline phosphatase increased [Unknown]
  - Dysuria [Unknown]
  - Body mass index decreased [Unknown]
  - Haemoglobin decreased [Unknown]
  - Platelet count decreased [Unknown]
  - Red blood cell count decreased [Unknown]
  - Pain in extremity [Unknown]
  - Erythema [Unknown]
  - Peripheral swelling [Unknown]
  - Vomiting [Unknown]

NARRATIVE: CASE EVENT DATE: 20220121
